FAERS Safety Report 6782626-3 (Version None)
Quarter: 2010Q2

REPORT INFORMATION
  Report Type: 
  Country: None (occurrence: None)
  Receive Date: 20100621
  Receipt Date: 20100609
  Transmission Date: 20101027
  Serious: Yes (Other)
  Sender: FDA-Public Use
  Company Number: FR-PFIZER INC-2010072610

PATIENT
  Age: 33 Year
  Sex: Female

DRUGS (2)
  1. SALAZOPYRIN [Suspect]
     Indication: ENTEROCOLITIS HAEMORRHAGIC
     Dosage: UNK
     Dates: end: 20100605
  2. LEVOTHYROXINE SODIUM [Concomitant]

REACTIONS (5)
  - HYPERSENSITIVITY [None]
  - LYMPHADENOPATHY [None]
  - PYREXIA [None]
  - RASH [None]
  - THROMBOCYTOPENIA [None]
